FAERS Safety Report 5690596-4 (Version None)
Quarter: 2008Q1

REPORT INFORMATION
  Report Type: 
  Country: None (occurrence: None)
  Receive Date: 20080331
  Receipt Date: 20080331
  Transmission Date: 20080703
  Serious: Yes (Other)
  Sender: FDA-Public Use
  Company Number: None

PATIENT
  Age: 28 Year
  Sex: Female
  Weight: 104.3273 kg

DRUGS (1)
  1. MIRENA [Suspect]
     Indication: CONTRACEPTION
     Dates: start: 20080212, end: 20080326

REACTIONS (8)
  - ABDOMINAL DISTENSION [None]
  - ACNE [None]
  - HEADACHE [None]
  - IUCD COMPLICATION [None]
  - OVARIAN CYST [None]
  - PAIN [None]
  - VAGINAL HAEMORRHAGE [None]
  - WEIGHT INCREASED [None]
